FAERS Safety Report 18785199 (Version 1)
Quarter: 2021Q1

REPORT INFORMATION
  Report Type: Spontaneous
  Country: AU (occurrence: AU)
  Receive Date: 20210125
  Receipt Date: 20210125
  Transmission Date: 20210419
  Serious: Yes (Other)
  Sender: FDA-Public Use
  Company Number: AU-SYNEX-T202100241

PATIENT
  Sex: Female

DRUGS (1)
  1. INOMAX [Suspect]
     Active Substance: NITRIC OXIDE
     Indication: PREMATURE BABY
     Dosage: 20 PPM (INHALATION)
     Route: 055

REACTIONS (3)
  - Oxygen saturation decreased [Recovered/Resolved]
  - Product use in unapproved indication [Unknown]
  - Endotracheal intubation complication [Recovered/Resolved]

NARRATIVE: CASE EVENT DATE: 20210114
